FAERS Safety Report 4554070-0 (Version None)
Quarter: 2005Q1

REPORT INFORMATION
  Report Type: 
  Country: None (occurrence: None)
  Receive Date: 20050118
  Receipt Date: 20041013
  Transmission Date: 20050727
  Serious: Yes (Hospitalization)
  Sender: FDA-Public Use
  Company Number: US-MERCK-0410USA02017

PATIENT
  Age: 76 Year
  Sex: Male
  Weight: 159 kg

DRUGS (8)
  1. VIOXX [Suspect]
     Indication: OSTEOARTHRITIS
     Route: 048
     Dates: start: 20010501, end: 20040801
  2. VASOTEC [Concomitant]
     Route: 065
  3. LANOXIN [Concomitant]
     Route: 065
  4. ALDOMET [Concomitant]
     Route: 065
  5. POTASSIUM (UNSPECIFIED) [Concomitant]
     Route: 065
  6. LASIX [Concomitant]
     Route: 065
  7. COUMADIN [Concomitant]
     Route: 065
  8. [THERAPY UNSPECIFIED] [Concomitant]
     Route: 065

REACTIONS (3)
  - ATRIAL FIBRILLATION [None]
  - CARDIAC FAILURE CONGESTIVE [None]
  - DYSPNOEA [None]
